FAERS Safety Report 4937496-2 (Version None)
Quarter: 2006Q1

REPORT INFORMATION
  Report Type: 
  Country: None (occurrence: None)
  Receive Date: 20060306
  Receipt Date: 20060228
  Transmission Date: 20060701
  Serious: Yes (Death, Other)
  Sender: FDA-Public Use
  Company Number: USA-2006-0023719

PATIENT
  Age: 34 Year
  Sex: Male

DRUGS (1)
  1. OXYCONTIN [Suspect]

REACTIONS (3)
  - COMPLETED SUICIDE [None]
  - DRUG DEPENDENCE [None]
  - GUN SHOT WOUND [None]
